FAERS Safety Report 5797009-2 (Version None)
Quarter: 2008Q3

REPORT INFORMATION
  Report Type: 
  Country: None (occurrence: None)
  Receive Date: 20080701
  Receipt Date: 20070626
  Transmission Date: 20090109
  Serious: Yes (Death)
  Sender: FDA-Public Use
  Company Number: US-BAYER-200826785NA

PATIENT
  Sex: Male

DRUGS (4)
  1. AVELOX [Suspect]
     Indication: CELLULITIS
     Route: 048
  2. CIPRO [Suspect]
  3. ANTIBIOTICS [Concomitant]
  4. CEFTRIAXONE [Concomitant]

REACTIONS (1)
  - DEATH [None]
